FAERS Safety Report 19653454 (Version 8)
Quarter: 2022Q2

REPORT INFORMATION
  Report Type: Other
  Country: JP (occurrence: JP)
  Receive Date: 20210803
  Receipt Date: 20220409
  Transmission Date: 20220721
  Serious: Yes (Death, Other)
  Sender: FDA-Public Use
  Company Number: JP-CHUGAI-2021007824

PATIENT
  Age: 58 Year
  Sex: Male
  Weight: 97.5 kg

DRUGS (7)
  1. ACTEMRA [Suspect]
     Active Substance: TOCILIZUMAB
     Indication: COVID-19
     Dosage: 8 MILLIGRAM, BIW
     Route: 041
     Dates: start: 20201128, end: 20201130
  2. DEXAMETHASONE [Suspect]
     Active Substance: DEXAMETHASONE
     Indication: COVID-19
     Dosage: UNK
     Route: 042
  3. METHYLPREDNISOLONE [Suspect]
     Active Substance: METHYLPREDNISOLONE
     Indication: COVID-19
     Route: 041
     Dates: start: 20201126, end: 20201128
  4. METHYLPREDNISOLONE [Suspect]
     Active Substance: METHYLPREDNISOLONE
     Route: 041
     Dates: start: 20201129, end: 20201201
  5. REMDESIVIR [Concomitant]
     Active Substance: REMDESIVIR
     Indication: COVID-19
     Dosage: UNK
     Route: 042
     Dates: start: 20201127, end: 20201127
  6. REMDESIVIR [Concomitant]
     Active Substance: REMDESIVIR
     Dates: start: 20201128, end: 20201128
  7. FAVIPIRAVIR [Concomitant]
     Active Substance: FAVIPIRAVIR
     Dates: start: 20201130, end: 20201130

REACTIONS (7)
  - Pancreatitis acute [Fatal]
  - Brain herniation [Fatal]
  - Disseminated mucormycosis [Fatal]
  - Multiple organ dysfunction syndrome [Fatal]
  - Acute kidney injury [Recovering/Resolving]
  - Sepsis [Fatal]
  - Off label use [Unknown]

NARRATIVE: CASE EVENT DATE: 20201130
